FAERS Safety Report 24930465 (Version 1)
Quarter: 2025Q1

REPORT INFORMATION
  Report Type: Other
  Country: IN (occurrence: IN)
  Receive Date: 20250205
  Receipt Date: 20250205
  Transmission Date: 20250409
  Serious: Yes (Other)
  Sender: ZHEJIANG YONGTAI
  Company Number: IN-Zhejiang Yongtai pharmaceuticals Co..,Ltd.-2170517

PATIENT
  Age: 50 Year
  Sex: Male

DRUGS (1)
  1. ROSUVASTATIN CALCIUM [Suspect]
     Active Substance: ROSUVASTATIN CALCIUM
     Indication: Dyslipidaemia
     Dates: start: 2022, end: 2022

REACTIONS (3)
  - Erectile dysfunction [Recovered/Resolved]
  - Testicular pain [Recovered/Resolved]
  - Loss of libido [Recovered/Resolved]

NARRATIVE: CASE EVENT DATE: 20220101
